FAERS Safety Report 9144969 (Version 1)
Quarter: 2013Q1

REPORT INFORMATION
  Report Type: Spontaneous
  Country: AT (occurrence: AT)
  Receive Date: 20130307
  Receipt Date: 20130307
  Transmission Date: 20140127
  Serious: Yes (Hospitalization)
  Sender: FDA-Public Use
  Company Number: AT-AMGEN-AUTSP2013013817

PATIENT
  Age: 71 Year
  Sex: Male

DRUGS (1)
  1. XGEVA [Suspect]
     Indication: METASTASES TO BONE
     Dosage: UNK UNK, Q4WK
     Dates: start: 2012

REACTIONS (5)
  - Laryngospasm [Recovered/Resolved]
  - Muscle spasms [Recovered/Resolved]
  - Electrocardiogram QT prolonged [Unknown]
  - Hypocalcaemia [Recovered/Resolved]
  - Dyspnoea [Recovered/Resolved]
